FAERS Safety Report 5896592-6 (Version None)
Quarter: 2008Q3

REPORT INFORMATION
  Report Type: 
  Country: None (occurrence: None)
  Receive Date: 20080924
  Receipt Date: 20080912
  Transmission Date: 20090109
  Serious: Yes (Hospitalization)
  Sender: FDA-Public Use
  Company Number: US-PFIZER INC-2008076736

PATIENT
  Sex: Male
  Weight: 72.1 kg

DRUGS (9)
  1. MARAVIROC [Suspect]
     Route: 048
     Dates: start: 20080331
  2. KALETRA [Concomitant]
     Route: 048
     Dates: start: 20070417
  3. REYATAZ [Concomitant]
     Route: 048
     Dates: start: 20080414
  4. ZITHROMAX [Concomitant]
     Route: 048
     Dates: start: 20070417
  5. BACTRIM DS [Concomitant]
     Route: 048
     Dates: start: 20070417
  6. FLUCONAZOLE [Concomitant]
     Route: 048
     Dates: start: 20070417
  7. CLONAZEPAM [Concomitant]
     Route: 048
     Dates: start: 20070417
  8. ISENTRESS [Concomitant]
     Route: 048
     Dates: start: 20080414
  9. MULTI-VITAMINS [Concomitant]
     Route: 048
     Dates: start: 20080414

REACTIONS (1)
  - HEADACHE [None]
